FAERS Safety Report 15639025 (Version 1)
Quarter: 2018Q4

REPORT INFORMATION
  Report Type: Spontaneous
  Country: US (occurrence: US)
  Receive Date: 20181120
  Receipt Date: 20181120
  Transmission Date: 20190205
  Serious: No
  Sender: FDA-Public Use
  Company Number: US-JNJFOC-20180303351

PATIENT
  Sex: Male
  Weight: 118 kg

DRUGS (5)
  1. IMBRUVICA [Suspect]
     Active Substance: IBRUTINIB
     Indication: CHRONIC LYMPHOCYTIC LEUKAEMIA
     Route: 048
     Dates: start: 20170829, end: 201802
  2. FLUTICASONE. [Concomitant]
     Active Substance: FLUTICASONE
  3. HCTZ [Concomitant]
     Active Substance: HYDROCHLOROTHIAZIDE
  4. ATORVASTATIN [Concomitant]
     Active Substance: ATORVASTATIN
  5. ALBUTEROL. [Concomitant]
     Active Substance: ALBUTEROL

REACTIONS (1)
  - Laboratory test abnormal [Unknown]
